FAERS Safety Report 7203585-5 (Version None)
Quarter: 2010Q4

REPORT INFORMATION
  Report Type: 
  Country: None (occurrence: None)
  Receive Date: 20101228
  Receipt Date: 20101228
  Transmission Date: 20110411
  Serious: Yes (Life-Threatening, Hospitalization)
  Sender: FDA-Public Use
  Company Number: None

PATIENT
  Age: 86 Year
  Sex: Female
  Weight: 67.6 kg

DRUGS (2)
  1. BACTRIM DS [Suspect]
     Indication: URINARY TRACT INFECTION
     Dosage: 1 TAB BID PO
     Route: 048
     Dates: start: 20101204, end: 20101210
  2. METHOTREXATE [Suspect]
     Indication: RHEUMATOID ARTHRITIS
     Dosage: 1 TAB WEEKLY PO
     Route: 048

REACTIONS (7)
  - ANAEMIA [None]
  - BLISTER [None]
  - LEUKOPENIA [None]
  - MENTAL STATUS CHANGES [None]
  - PYREXIA [None]
  - SKIN BURNING SENSATION [None]
  - STOMATITIS [None]
